FAERS Safety Report 7948744-9 (Version None)
Quarter: 2011Q4

REPORT INFORMATION
  Report Type: 
  Country: None (occurrence: None)
  Receive Date: 20111130
  Receipt Date: 20111118
  Transmission Date: 20120403
  Serious: Yes (Other)
  Sender: FDA-Public Use
  Company Number: US-BAYER-2011-107707

PATIENT
  Age: 26 Year
  Sex: Female

DRUGS (1)
  1. MIRENA [Suspect]
     Dosage: 20 MCG/24HR, CONT
     Route: 015
     Dates: start: 20101022, end: 20111001

REACTIONS (4)
  - VAGINAL HAEMORRHAGE [None]
  - DEVICE DISLOCATION [None]
  - PAIN [None]
  - DISCOMFORT [None]
